FAERS Safety Report 7480841-7 (Version None)
Quarter: 2011Q2

REPORT INFORMATION
  Report Type: 
  Country: None (occurrence: None)
  Receive Date: 20110516
  Receipt Date: 20110503
  Transmission Date: 20111010
  Serious: Yes (Other)
  Sender: FDA-Public Use
  Company Number: GB-RANBAXY-2011R1-44161

PATIENT
  Age: 76 Year
  Sex: Female

DRUGS (6)
  1. ATRACURIUM BESYLATE [Interacting]
     Indication: ANAESTHESIA
     Dosage: UNK,UNK
     Route: 042
     Dates: start: 20100923, end: 20100923
  2. SUCCINYLCHLOLINE CHLORIDE INJ [Concomitant]
     Indication: ANAESTHESIA
     Dosage: UNK,UNK
     Route: 042
     Dates: start: 20100923, end: 20100923
  3. AMPICILLIN SODIUM/SULBACTAM SODIUM [Suspect]
     Indication: PRODUCT USED FOR UNKNOWN INDICATION
     Dosage: UNK.UNK
     Route: 042
     Dates: start: 20100923, end: 20100923
  4. GENTAMICIN [Concomitant]
     Indication: PRODUCT USED FOR UNKNOWN INDICATION
     Dosage: UNK,UNK
     Route: 042
     Dates: start: 20100923, end: 20100923
  5. PROPOFOL [Concomitant]
     Indication: ANAESTHESIA
     Dosage: UNK,UNK
     Route: 042
     Dates: start: 20100923, end: 20100923
  6. REMIFENTANIL [Concomitant]
     Indication: ANAESTHESIA
     Dosage: UNK,UNK
     Route: 042
     Dates: start: 20100923, end: 20100923

REACTIONS (2)
  - BLOOD PRESSURE DECREASED [None]
  - DRUG INTERACTION [None]
